FAERS Safety Report 5723701-1 (Version None)
Quarter: 2008Q2

REPORT INFORMATION
  Report Type: 
  Country: None (occurrence: None)
  Receive Date: 20080429
  Receipt Date: 20080429
  Transmission Date: 20081010
  Serious: Yes (Hospitalization)
  Sender: FDA-Public Use
  Company Number: None

PATIENT
  Age: 61 Year
  Sex: Male
  Weight: 70.8 kg

DRUGS (2)
  1. DASATINIB [Suspect]
     Indication: PROSTATE CANCER
     Dosage: 70 MG PO BID
     Route: 048
     Dates: start: 20080422, end: 20080425
  2. DASATINIB [Suspect]

REACTIONS (2)
  - HAEMOGLOBIN DECREASED [None]
  - RESPIRATORY DISORDER [None]
